FAERS Safety Report 23978123 (Version 1)
Quarter: 2024Q2

REPORT INFORMATION
  Report Type: Spontaneous
  Country: US (occurrence: US)
  Receive Date: 20240614
  Receipt Date: 20240614
  Transmission Date: 20240716
  Serious: No
  Sender: FDA-Public Use
  Company Number: US-SA-SAC20240613000532

PATIENT
  Sex: Female

DRUGS (11)
  1. DUPIXENT [Suspect]
     Active Substance: DUPILUMAB
     Indication: Asthma
     Dosage: 300 MG, QOW
     Route: 058
  2. ADVAIR HFA [Concomitant]
     Active Substance: FLUTICASONE PROPIONATE\SALMETEROL XINAFOATE
  3. ELIQUIS [Concomitant]
     Active Substance: APIXABAN
  4. FLONASE ALLERGY RELIEF [Concomitant]
     Active Substance: FLUTICASONE PROPIONATE
     Dosage: 50UG/AC
  5. GABAPENTIN [Concomitant]
     Active Substance: GABAPENTIN
  6. HYDROCODONE [Concomitant]
     Active Substance: HYDROCODONE
  7. ISOSORBIDE [Concomitant]
     Active Substance: ISOSORBIDE
  8. ROSUVASTATIN [Concomitant]
     Active Substance: ROSUVASTATIN
  9. ZYRTEC [Concomitant]
     Active Substance: CETIRIZINE HYDROCHLORIDE
  10. ALBUTEROL SULFATE [Concomitant]
     Active Substance: ALBUTEROL SULFATE
  11. SINGULAIR [Concomitant]
     Active Substance: MONTELUKAST SODIUM

REACTIONS (3)
  - Cough [Unknown]
  - Insomnia [Unknown]
  - Dry eye [Unknown]
